FAERS Safety Report 16998151 (Version 1)
Quarter: 2019Q4

REPORT INFORMATION
  Report Type: Spontaneous
  Country: US (occurrence: US)
  Receive Date: 20190925
  Receipt Date: 20190925
  Transmission Date: 20200122
  Serious: No
  Sender: FDA-Public Use
  Company Number: None

PATIENT
  Age: 72 Year
  Sex: Male

DRUGS (1)
  1. REPATHA [Suspect]
     Active Substance: EVOLOCUMAB
     Dates: start: 201902

REACTIONS (3)
  - Myalgia [None]
  - Cardiac failure congestive [None]
  - Neuropathy peripheral [None]

NARRATIVE: CASE EVENT DATE: 20190925
